FAERS Safety Report 7318198-4 (Version None)
Quarter: 2011Q1

REPORT INFORMATION
  Report Type: 
  Country: None (occurrence: None)
  Receive Date: 20110228
  Receipt Date: 20110214
  Transmission Date: 20110831
  Serious: No
  Sender: FDA-Public Use
  Company Number: US-BIOGENIDEC-2011BI006387

PATIENT
  Sex: Female

DRUGS (2)
  1. TYSABRI [Suspect]
     Indication: MULTIPLE SCLEROSIS
     Route: 042
     Dates: start: 20070920
  2. TYSABRI [Suspect]
     Route: 042
     Dates: start: 20060828, end: 20070117

REACTIONS (3)
  - MULTIPLE SCLEROSIS [None]
  - BALANCE DISORDER [None]
  - INCONTINENCE [None]
